FAERS Safety Report 23129930 (Version 8)
Quarter: 2025Q2

REPORT INFORMATION
  Report Type: Report from Study
  Country: US (occurrence: US)
  Receive Date: 20231031
  Receipt Date: 20250507
  Transmission Date: 20250717
  Serious: Yes (Other)
  Sender: OTSUKA
  Company Number: US-OTSUKA-2023_028094

PATIENT
  Sex: Female

DRUGS (2)
  1. TOLVAPTAN [Suspect]
     Active Substance: TOLVAPTAN
     Indication: Congenital cystic kidney disease
     Route: 065
     Dates: start: 20230823
  2. TOLVAPTAN [Suspect]
     Active Substance: TOLVAPTAN
     Route: 065
     Dates: start: 20220827

REACTIONS (8)
  - Limb operation [Unknown]
  - Limb operation [Not Recovered/Not Resolved]
  - Cast application [Not Recovered/Not Resolved]
  - COVID-19 [Recovered/Resolved]
  - Osteoporosis [Unknown]
  - Nasopharyngitis [Unknown]
  - Viral infection [Unknown]
  - Product dose omission issue [Recovered/Resolved]

NARRATIVE: CASE EVENT DATE: 20231025
